FAERS Safety Report 5144043-1 (Version None)
Quarter: 2006Q4

REPORT INFORMATION
  Report Type: 
  Country: None (occurrence: None)
  Receive Date: 20061106
  Receipt Date: 20060413
  Transmission Date: 20070319
  Serious: No
  Sender: FDA-Public Use
  Company Number: US-GLAXOSMITHKLINE-A0601694A

PATIENT
  Age: 54 Year
  Sex: Female

DRUGS (2)
  1. AMOXIL [Suspect]
     Indication: TOOTH ABSCESS
     Dosage: 500MG THREE TIMES PER DAY
     Route: 048
     Dates: start: 20060314, end: 20060322
  2. NO CONCURRENT MEDICATION [Concomitant]

REACTIONS (2)
  - DYSGEUSIA [None]
  - GLOSSODYNIA [None]
